FAERS Safety Report 8450608 (Version 3)
Quarter: 2013Q4

REPORT INFORMATION
  Report Type: Spontaneous
  Country: GB (occurrence: GB)
  Receive Date: 20120309
  Receipt Date: 20131028
  Transmission Date: 20140711
  Serious: Yes (Other)
  Sender: FDA-Public Use
  Company Number: GB-MPIJNJ-2012-01577

PATIENT
  Sex: 0

DRUGS (3)
  1. VELCADE [Suspect]
     Indication: PLASMA CELL MYELOMA
     Dosage: 1.2 MG/M2, UNK
     Route: 042
     Dates: start: 20111110, end: 20120228
  2. PAMIDRONATE [Concomitant]
     Indication: PLASMA CELL MYELOMA
     Dosage: UNK
     Route: 042
     Dates: start: 201111
  3. DEXAMETHASONE [Concomitant]
     Indication: PLASMA CELL MYELOMA
     Dosage: UNK
     Dates: start: 201111

REACTIONS (3)
  - Weight decreased [Recovered/Resolved]
  - Decreased appetite [Recovered/Resolved]
  - Fatigue [Recovered/Resolved]
